FAERS Safety Report 24951019 (Version 1)
Quarter: 2025Q1

REPORT INFORMATION
  Report Type: Report from Study
  Country: CN (occurrence: CN)
  Receive Date: 20250210
  Receipt Date: 20250210
  Transmission Date: 20250408
  Serious: Yes (Death)
  Sender: BAYER HEALTHCARE PHARMACEUTICALS INC.
  Company Number: CN-BAYER-2025A019010

PATIENT
  Sex: Male

DRUGS (1)
  1. NUBEQA [Suspect]
     Active Substance: DAROLUTAMIDE
     Indication: Prostate cancer

REACTIONS (1)
  - Death [Fatal]
